FAERS Safety Report 5612479-8 (Version None)
Quarter: 2008Q1

REPORT INFORMATION
  Report Type: 
  Country: None (occurrence: None)
  Receive Date: 20080204
  Receipt Date: 20080131
  Transmission Date: 20080703
  Serious: Yes (Hospitalization, Other)
  Sender: FDA-Public Use
  Company Number: US-BRISTOL-MYERS SQUIBB COMPANY-14061261

PATIENT
  Age: 54 Year
  Sex: Male
  Weight: 60 kg

DRUGS (3)
  1. ERBITUX [Suspect]
     Indication: SQUAMOUS CELL CARCINOMA
     Dosage: FIRST INFUSION WAS STARTED ON 08-NOV-2007
     Dates: start: 20071231, end: 20071231
  2. CISPLATIN [Suspect]
     Indication: SQUAMOUS CELL CARCINOMA
     Dates: start: 20071217, end: 20071217
  3. RADIATION THERAPY [Suspect]
     Indication: SQUAMOUS CELL CARCINOMA
     Dosage: 1DOSAGE FORM=70GY, 35 FRACTIONS GIVEN 6 DAYS A WEEK FOR TOTAL OF 6 WEEKS.
     Dates: start: 20071229, end: 20071229

REACTIONS (2)
  - FEBRILE NEUTROPENIA [None]
  - RADIATION SKIN INJURY [None]
